FAERS Safety Report 8596214 (Version 3)
Quarter: 2014Q1

REPORT INFORMATION
  Report Type: Spontaneous
  Country: US (occurrence: US)
  Receive Date: 20120605
  Receipt Date: 20140131
  Transmission Date: 20141002
  Serious: Yes (Hospitalization, Disabling, Other)
  Sender: FDA-Public Use
  Company Number: US-ASTRAZENECA-2012SE35070

PATIENT
  Age: 753 Month
  Sex: Female
  Weight: 70.3 kg

DRUGS (37)
  1. NEXIUM [Suspect]
     Indication: GASTROOESOPHAGEAL REFLUX DISEASE
     Route: 048
  2. NEXIUM [Suspect]
     Indication: DYSPEPSIA
     Route: 048
  3. NEXIUM [Suspect]
     Indication: GASTROOESOPHAGEAL REFLUX DISEASE
     Route: 048
     Dates: start: 20091022
  4. NEXIUM [Suspect]
     Indication: DYSPEPSIA
     Route: 048
     Dates: start: 20091022
  5. NEXIUM [Suspect]
     Indication: GASTROOESOPHAGEAL REFLUX DISEASE
     Route: 048
     Dates: start: 20100220
  6. NEXIUM [Suspect]
     Indication: DYSPEPSIA
     Route: 048
     Dates: start: 20100220
  7. TUMS [Concomitant]
     Indication: GASTROOESOPHAGEAL REFLUX DISEASE
  8. TUMS [Concomitant]
     Indication: DYSPEPSIA
  9. BAKING SODA [Concomitant]
     Indication: GASTROOESOPHAGEAL REFLUX DISEASE
  10. BAKING SODA [Concomitant]
     Indication: DYSPEPSIA
  11. PEPCID [Concomitant]
  12. PEPTO BISMOL [Concomitant]
     Indication: GASTROOESOPHAGEAL REFLUX DISEASE
  13. PEPTO BISMOL [Concomitant]
     Indication: GASTROOESOPHAGEAL REFLUX DISEASE
  14. MILK OF MAGNESIA [Concomitant]
  15. MYLANTA [Concomitant]
  16. LIPITOR [Concomitant]
  17. COUMADIN [Concomitant]
     Indication: ANTICOAGULANT THERAPY
  18. OMEPRAZOLE [Concomitant]
  19. CHLORZOXAZONE [Concomitant]
  20. NITROSTAT [Concomitant]
     Indication: CARDIAC DISORDER
  21. PLAVIX [Concomitant]
     Indication: CARDIOVASCULAR EVENT PROPHYLAXIS
  22. ZOLOFT [Concomitant]
  23. SUCRALFATE [Concomitant]
  24. LYRICA [Concomitant]
     Indication: CONVULSION
  25. ISOSOBARBIDE MN [Concomitant]
     Indication: ANGINA PECTORIS
  26. METOPROLOL SUCCINATE [Concomitant]
     Indication: BLOOD PRESSURE
  27. FOSINOPRIL [Concomitant]
     Indication: BLOOD PRESSURE
  28. FUROSEMIDE [Concomitant]
     Indication: FLUID RETENTION
  29. EVISTA [Concomitant]
  30. TOPROL XL [Concomitant]
  31. CYCLOBENZAPRINE [Concomitant]
  32. LORAZEPAM [Concomitant]
     Dates: start: 20050411
  33. NEURONTIN [Concomitant]
  34. ALLEGRA D [Concomitant]
  35. MAVIK [Concomitant]
  36. FOSAMAX [Concomitant]
  37. PREDNISONE [Concomitant]

REACTIONS (23)
  - Wrist fracture [Unknown]
  - Spinal compression fracture [Unknown]
  - Radius fracture [Unknown]
  - Hip fracture [Unknown]
  - Upper limb fracture [Unknown]
  - Ankle fracture [Unknown]
  - Femur fracture [Unknown]
  - Myocardial infarction [Unknown]
  - Pelvic fracture [Unknown]
  - Ulna fracture [Unknown]
  - Fall [Unknown]
  - Osteoarthritis [Unknown]
  - Osteoporosis [Unknown]
  - Foot fracture [Unknown]
  - Aortic disorder [Unknown]
  - Osteogenesis imperfecta [Unknown]
  - Bone pain [Unknown]
  - Calcium deficiency [Unknown]
  - Glaucoma [Unknown]
  - Bone disorder [Unknown]
  - Intervertebral disc degeneration [Unknown]
  - Osteopenia [Unknown]
  - Depression [Unknown]
